FAERS Safety Report 10651795 (Version 2)
Quarter: 2015Q1

REPORT INFORMATION
  Report Type: Spontaneous
  Country: IT (occurrence: IT)
  Receive Date: 20141215
  Receipt Date: 20150212
  Transmission Date: 20150720
  Serious: Yes (Hospitalization)
  Sender: FDA-Public Use
  Company Number: IT-TEVA-528584ISR

PATIENT
  Age: 9 Year
  Sex: Male
  Weight: 33 kg

DRUGS (1)
  1. NUROFEN FEBBRE E DOLORE BAMBINI - 100 MG/ 5 ML SOSPENSIONE ORALE [Suspect]
     Active Substance: IBUPROFEN
     Indication: PYREXIA
     Dosage: 30 ML DAILY;
     Dates: start: 20141108, end: 20141113

REACTIONS (5)
  - Rash maculo-papular [Recovered/Resolved]
  - Herpes simplex [Recovered/Resolved]
  - Tongue coated [Recovered/Resolved]
  - Oral herpes [Recovered/Resolved]
  - Stomatitis [Unknown]

NARRATIVE: CASE EVENT DATE: 20141116
